FAERS Safety Report 12692741 (Version 1)
Quarter: 2016Q3

REPORT INFORMATION
  Report Type: Spontaneous
  Country: GB (occurrence: GB)
  Receive Date: 20160829
  Receipt Date: 20160829
  Transmission Date: 20161109
  Serious: Yes (Life-Threatening, Hospitalization, Other)
  Sender: FDA-Public Use
  Company Number: GB-ACCORD-043411

PATIENT
  Age: 44 Year
  Sex: Male

DRUGS (7)
  1. QUETIAPINE. [Suspect]
     Active Substance: QUETIAPINE
     Indication: PRODUCT USED FOR UNKNOWN INDICATION
  2. DIAZEPAM. [Concomitant]
     Active Substance: DIAZEPAM
  3. ZOMORPH [Concomitant]
     Active Substance: MORPHINE SULFATE
  4. CLOMETHIAZOLE/CLOMETHIAZOLE EDISILATE [Concomitant]
     Active Substance: CLOMETHIAZOLE
  5. PREGABALIN. [Concomitant]
     Active Substance: PREGABALIN
  6. PROCYCLIDINE/PROCYCLIDINE HYDROCHLORIDE [Concomitant]
     Indication: MYOCLONUS
  7. VENLAFAXINE [Interacting]
     Active Substance: VENLAFAXINE HYDROCHLORIDE
     Indication: PRODUCT USED FOR UNKNOWN INDICATION

REACTIONS (6)
  - Aggression [None]
  - Seizure [None]
  - Lactic acidosis [None]
  - Tardive dyskinesia [None]
  - Drug interaction [Unknown]
  - Serotonin syndrome [Recovered/Resolved]
